FAERS Safety Report 7428772-2 (Version None)
Quarter: 2011Q2

REPORT INFORMATION
  Report Type: 
  Country: None (occurrence: None)
  Receive Date: 20110421
  Receipt Date: 20110407
  Transmission Date: 20111010
  Serious: Yes (Hospitalization)
  Sender: FDA-Public Use
  Company Number: DE-JNJFOC-20110403904

PATIENT
  Age: 45 Year
  Sex: Male
  Weight: 55 kg

DRUGS (4)
  1. HUMIRA [Suspect]
     Indication: PRODUCT USED FOR UNKNOWN INDICATION
  2. REMICADE [Suspect]
     Indication: CROHN'S DISEASE
     Route: 042
  3. CREON [Concomitant]
     Dosage: 40000 IE
  4. VITAMIN B-12 [Concomitant]

REACTIONS (2)
  - GASTRITIS [None]
  - REFLUX OESOPHAGITIS [None]
